FAERS Safety Report 9148996 (Version 1)
Quarter: 2013Q1

REPORT INFORMATION
  Report Type: Spontaneous
  Country: US (occurrence: US)
  Receive Date: 20130308
  Receipt Date: 20130308
  Transmission Date: 20140127
  Serious: No
  Sender: FDA-Public Use
  Company Number: US-ENDO PHARMACEUTICALS INC.-OPCR20121672

PATIENT
  Sex: Female

DRUGS (4)
  1. OPANA ER 20MG [Suspect]
     Indication: BACK PAIN
     Route: 048
     Dates: start: 201204
  2. OPANA ER 20MG [Suspect]
     Indication: PAIN IN EXTREMITY
  3. OPANA ER 20MG [Concomitant]
     Indication: BACK PAIN
     Route: 048
     Dates: end: 201204
  4. OPANA ER 20MG [Concomitant]
     Indication: PAIN IN EXTREMITY

REACTIONS (3)
  - Rash [Unknown]
  - Vomiting [Unknown]
  - Drug ineffective [Unknown]
